FAERS Safety Report 25881648 (Version 1)
Quarter: 2025Q4

REPORT INFORMATION
  Report Type: Spontaneous
  Country: US (occurrence: US)
  Receive Date: 20251005
  Receipt Date: 20251005
  Transmission Date: 20260118
  Serious: No
  Sender: SANOFI AVENTIS
  Company Number: US-SA-2025SA292581

PATIENT
  Age: 53 Year
  Sex: Male

DRUGS (9)
  1. DUPIXENT [Suspect]
     Active Substance: DUPILUMAB
     Indication: Asthma
     Dosage: 300 MG
     Route: 058
     Dates: start: 20211208
  2. ALBUTEROL [Concomitant]
     Active Substance: ALBUTEROL
  3. FLUTICASONE [Concomitant]
     Active Substance: FLUTICASONE
  4. SEREVENT DISKUS [Concomitant]
     Active Substance: SALMETEROL XINAFOATE
  5. MONTELUKAST [Concomitant]
     Active Substance: MONTELUKAST
  6. HYDROCHLOROTHIAZIDE [Concomitant]
     Active Substance: HYDROCHLOROTHIAZIDE
  7. VITAMIN C [Concomitant]
     Active Substance: ASCORBIC ACID
  8. AIRBORNE [Concomitant]
     Active Substance: HERBALS\MINERALS\VITAMINS
  9. ADVIL [Concomitant]
     Active Substance: IBUPROFEN

REACTIONS (1)
  - Cough [Unknown]

NARRATIVE: CASE EVENT DATE: 20250929
